FAERS Safety Report 4837739-X (Version None)
Quarter: 2005Q4

REPORT INFORMATION
  Report Type: 
  Country: None (occurrence: None)
  Receive Date: 20051128
  Receipt Date: 20051004
  Transmission Date: 20060501
  Serious: Yes (Hospitalization, Disabling)
  Sender: FDA-Public Use
  Company Number: US-MERCK-0510USA02437

PATIENT
  Age: 62 Year
  Sex: Female
  Weight: 77 kg

DRUGS (8)
  1. VIOXX [Suspect]
     Indication: ARTHRITIS
     Route: 048
     Dates: start: 19991101, end: 20030601
  2. ATENOLOL MSD [Concomitant]
     Route: 065
  3. CLONIDINE [Concomitant]
     Route: 065
  4. HYDROCHLOROTHIAZIDE [Concomitant]
     Route: 065
  5. LISINOPRIL [Concomitant]
     Route: 065
  6. NEURONTIN [Concomitant]
     Route: 065
  7. RANITIDINE [Concomitant]
     Route: 065
  8. TYLENOL [Concomitant]
     Route: 065

REACTIONS (6)
  - ARTHROPATHY [None]
  - CATARACT [None]
  - CEREBROVASCULAR ACCIDENT [None]
  - DEPRESSION [None]
  - GALLBLADDER DISORDER [None]
  - HYPERTENSION [None]
